FAERS Safety Report 20220326 (Version 1)
Quarter: 2021Q4

REPORT INFORMATION
  Report Type: Spontaneous
  Country: BR (occurrence: BR)
  Receive Date: 20211223
  Receipt Date: 20211223
  Transmission Date: 20220303
  Serious: Yes (Death, Life-Threatening, Hospitalization, Other)
  Sender: FDA-Public Use
  Company Number: BR-JNJFOC-20211206277

PATIENT
  Age: 70 Year
  Sex: Male
  Weight: 86.3 kg

DRUGS (10)
  1. ZYTIGA [Suspect]
     Active Substance: ABIRATERONE ACETATE
     Indication: Prostate cancer metastatic
     Route: 048
     Dates: start: 20201229
  2. NIRAPARIB [Suspect]
     Active Substance: NIRAPARIB
     Indication: Prostate cancer metastatic
     Route: 048
     Dates: start: 20201229
  3. PREDNISONE [Suspect]
     Active Substance: PREDNISONE
     Indication: Prostate cancer metastatic
     Route: 048
     Dates: start: 20201229
  4. BETAMETHASONE [Concomitant]
     Active Substance: BETAMETHASONE
     Indication: Diabetic foot
     Dates: start: 20210108, end: 20210108
  5. KETOPROFEN [Concomitant]
     Active Substance: KETOPROFEN
     Indication: Diabetic foot
     Dates: start: 20210125, end: 20210125
  6. ACETAMINOPHEN\CODEINE PHOSPHATE [Concomitant]
     Active Substance: ACETAMINOPHEN\CODEINE PHOSPHATE
     Indication: Diabetic foot
     Dates: start: 20210125, end: 20210210
  7. ZOLADEX [Concomitant]
     Active Substance: GOSERELIN ACETATE
     Indication: Prostate cancer metastatic
     Dates: start: 20210215
  8. DIOSMIN [Concomitant]
     Active Substance: DIOSMIN
     Indication: Varicose vein
     Dates: start: 20210329, end: 20210514
  9. VITAMIN D NOS [Concomitant]
     Active Substance: VITAMIN D NOS
     Indication: Prophylaxis
     Dates: start: 20210615
  10. CALCIUM [Concomitant]
     Active Substance: CALCIUM
     Indication: Prophylaxis
     Dates: start: 20210615

REACTIONS (9)
  - Acute myocardial infarction [Fatal]
  - Hyperglycaemia [Recovered/Resolved]
  - Hypertension [Recovered/Resolved]
  - Dyspepsia [Recovered/Resolved]
  - Blood urea increased [Unknown]
  - Anaemia [Recovered/Resolved]
  - Constipation [Recovered/Resolved]
  - Dyspepsia [Recovered/Resolved]
  - Hyponatraemia [Recovered/Resolved]

NARRATIVE: CASE EVENT DATE: 20210112
